FAERS Safety Report 7365429-0 (Version None)
Quarter: 2011Q1

REPORT INFORMATION
  Report Type: 
  Country: None (occurrence: None)
  Receive Date: 20110310
  Receipt Date: 20110228
  Transmission Date: 20110831
  Serious: Yes (Other)
  Sender: FDA-Public Use
  Company Number: GB-20110010

PATIENT
  Age: 82 Year
  Sex: Female

DRUGS (2)
  1. LIPIODOL (ETHIODIZED OIL) [Suspect]
     Indication: THERAPEUTIC EMBOLISATION
     Dosage: INTRA-ARTERIAL
     Route: 013
  2. GLUBRAN (N-BUTYL CYANOACRYLATE ACRYLIC GLUE) [Suspect]
     Indication: THERAPEUTIC EMBOLISATION
     Dosage: INTRA-ARTERIAL
     Route: 013

REACTIONS (3)
  - SKIN ULCER [None]
  - BLISTER [None]
  - SKIN NECROSIS [None]
